FAERS Safety Report 10780248 (Version 9)
Quarter: 2021Q1

REPORT INFORMATION
  Report Type: Spontaneous
  Country: US (occurrence: US)
  Receive Date: 20150210
  Receipt Date: 20210331
  Transmission Date: 20210419
  Serious: No
  Sender: FDA-Public Use
  Company Number: US-PFIZER INC-2015051823

PATIENT
  Age: 62 Year
  Sex: Female
  Weight: 57 kg

DRUGS (2)
  1. PREMARIN [Suspect]
     Active Substance: ESTROGENS, CONJUGATED
     Dosage: 1.25 G, 1X/DAY
  2. PREMARIN [Suspect]
     Active Substance: ESTROGENS, CONJUGATED
     Indication: OOPHORECTOMY
     Dosage: 1.25 MG, DAILY
     Route: 048
     Dates: start: 1987

REACTIONS (10)
  - Dysstasia [Unknown]
  - Oropharyngeal pain [Recovering/Resolving]
  - Influenza [Recovering/Resolving]
  - Ear infection [Recovering/Resolving]
  - Illness [Unknown]
  - Product prescribing error [Unknown]
  - Ear pain [Unknown]
  - Hypoacusis [Recovering/Resolving]
  - Diarrhoea [Recovering/Resolving]
  - Sinusitis [Unknown]

NARRATIVE: CASE EVENT DATE: 20141225
